FAERS Safety Report 17052412 (Version 1)
Quarter: 2019Q4

REPORT INFORMATION
  Report Type: Report from Study
  Country: JP (occurrence: JP)
  Receive Date: 20191120
  Receipt Date: 20191120
  Transmission Date: 20200122
  Serious: Yes (Hospitalization)
  Sender: FDA-Public Use
  Company Number: JP-BIOCODEX SA-201901518

PATIENT

DRUGS (12)
  1. MIDAZOLAM [Concomitant]
     Active Substance: MIDAZOLAM HYDROCHLORIDE
     Indication: SEVERE MYOCLONIC EPILEPSY OF INFANCY
     Dosage: 2 MG, UNK
     Route: 041
     Dates: start: 20170823, end: 20170828
  2. DIACOMIT [Suspect]
     Active Substance: STIRIPENTOL
     Indication: SEVERE MYOCLONIC EPILEPSY OF INFANCY
     Dosage: 75 MG, QD
     Route: 048
     Dates: start: 20170802, end: 20170816
  3. CLOBAZAM. [Concomitant]
     Active Substance: CLOBAZAM
     Indication: SEVERE MYOCLONIC EPILEPSY OF INFANCY
     Dosage: 3 MG, QD
     Route: 048
     Dates: end: 20170705
  4. CLOBAZAM. [Concomitant]
     Active Substance: CLOBAZAM
     Dosage: 6.5 MG, QD
     Route: 048
     Dates: start: 20180725
  5. MIDAZOLAM [Concomitant]
     Active Substance: MIDAZOLAM HYDROCHLORIDE
     Dosage: 0.2-0.4MG/KG/H
     Route: 041
     Dates: start: 20180726
  6. DIACOMIT [Suspect]
     Active Substance: STIRIPENTOL
     Dosage: 350 MG, QD
     Route: 048
     Dates: start: 20180523
  7. CLOBAZAM. [Concomitant]
     Active Substance: CLOBAZAM
     Dosage: 4.5 MG, QD
     Route: 048
     Dates: start: 20170706, end: 20170717
  8. SODIUM VALPROATE [Concomitant]
     Active Substance: VALPROATE SODIUM
     Dosage: 150 MG, QD
     Route: 048
     Dates: start: 20170817
  9. LEVOCARNITINE. [Concomitant]
     Active Substance: LEVOCARNITINE
     Indication: PROPHYLAXIS
     Dosage: 2.5 ML, QD
     Route: 048
  10. FERRIC PYROPHOSPHATE, SOLUBLE [Concomitant]
     Indication: PRODUCT USED FOR UNKNOWN INDICATION
     Dosage: 4 ML, QD
     Route: 048
  11. CLOBAZAM. [Concomitant]
     Active Substance: CLOBAZAM
     Dosage: 6 MG, QD
     Route: 048
     Dates: start: 20170718, end: 20180725
  12. SODIUM VALPROATE [Concomitant]
     Active Substance: VALPROATE SODIUM
     Indication: SEVERE MYOCLONIC EPILEPSY OF INFANCY
     Dosage: 200 MG, QD
     Route: 048
     Dates: end: 20170816

REACTIONS (1)
  - Hepatic encephalopathy [Recovered/Resolved]

NARRATIVE: CASE EVENT DATE: 201906
